FAERS Safety Report 16540640 (Version 3)
Quarter: 2019Q3

REPORT INFORMATION
  Report Type: Spontaneous
  Country: US (occurrence: US)
  Receive Date: 20190708
  Receipt Date: 20190807
  Transmission Date: 20191004
  Serious: No
  Sender: FDA-Public Use
  Company Number: US-SA-2019SA180797

PATIENT
  Sex: Female

DRUGS (1)
  1. PRALUENT [Suspect]
     Active Substance: ALIROCUMAB
     Indication: TYPE IIA HYPERLIPIDAEMIA
     Dosage: 150 MG, QOW
     Dates: start: 2016

REACTIONS (7)
  - Low density lipoprotein increased [Unknown]
  - Blood cholesterol increased [Unknown]
  - Blood triglycerides increased [Unknown]
  - High density lipoprotein decreased [Recovered/Resolved]
  - Non-high-density lipoprotein cholesterol increased [Unknown]
  - Blood cholesterol decreased [Recovered/Resolved]
  - Total cholesterol/HDL ratio increased [Unknown]

NARRATIVE: CASE EVENT DATE: 20180126
